FAERS Safety Report 11754827 (Version 8)
Quarter: 2016Q2

REPORT INFORMATION
  Report Type: Spontaneous
  Country: US (occurrence: US)
  Receive Date: 20151119
  Receipt Date: 20160617
  Transmission Date: 20160815
  Serious: Yes (Hospitalization, Other)
  Sender: FDA-Public Use
  Company Number: US-ELI_LILLY_AND_COMPANY-US201511003324

PATIENT
  Sex: Male
  Weight: 126.8 kg

DRUGS (3)
  1. ZYPREXA [Suspect]
     Active Substance: OLANZAPINE
     Dosage: 10 MG, QD
     Route: 065
  2. ZYPREXA [Suspect]
     Active Substance: OLANZAPINE
     Indication: PSYCHOTIC DISORDER
     Dosage: 15MG, EACH EVENING
     Route: 065
     Dates: start: 201101
  3. ZYPREXA [Suspect]
     Active Substance: OLANZAPINE
     Dosage: 5 MG, UNKNOWN
     Route: 065

REACTIONS (31)
  - Stress [Unknown]
  - Abdominal pain upper [Unknown]
  - Panic attack [Unknown]
  - Weight increased [Unknown]
  - Constipation [Unknown]
  - Increased appetite [Unknown]
  - Suicide attempt [Unknown]
  - Hypoaesthesia [Unknown]
  - Dizziness [Unknown]
  - Spinal osteoarthritis [Unknown]
  - Bipolar I disorder [Unknown]
  - Onychophagia [Unknown]
  - Hypertension [Unknown]
  - Pain in extremity [Unknown]
  - Dry mouth [Unknown]
  - Blood cholesterol increased [Unknown]
  - Paraesthesia [Unknown]
  - Diabetes mellitus [Unknown]
  - Urinary incontinence [Unknown]
  - Hypersomnia [Unknown]
  - Psychotic disorder [Unknown]
  - Memory impairment [Unknown]
  - Sleep apnoea syndrome [Unknown]
  - Fatigue [Unknown]
  - Somnolence [Unknown]
  - Intervertebral disc space narrowing [Unknown]
  - Treatment noncompliance [Unknown]
  - Restlessness [Unknown]
  - Headache [Unknown]
  - Dyspepsia [Unknown]
  - Alopecia [Unknown]
